FAERS Safety Report 5912360-0 (Version None)
Quarter: 2008Q4

REPORT INFORMATION
  Report Type: 
  Country: None (occurrence: None)
  Receive Date: 20081008
  Receipt Date: 20081002
  Transmission Date: 20090506
  Serious: Yes (Other)
  Sender: FDA-Public Use
  Company Number: US-PURDUE-GBR_2008_0004266

PATIENT
  Age: 57 Year
  Sex: Female

DRUGS (1)
  1. OXYCODONE HCL [Suspect]
     Indication: PAIN
     Dosage: 10 MG, PRN MAXIMUM 40MG DAILY
     Route: 065

REACTIONS (1)
  - SLEEP APNOEA SYNDROME [None]
